FAERS Safety Report 6087210-5 (Version None)
Quarter: 2009Q1

REPORT INFORMATION
  Report Type: 
  Country: None (occurrence: None)
  Receive Date: 20090223
  Receipt Date: 20090216
  Transmission Date: 20090719
  Serious: Yes (Hospitalization)
  Sender: FDA-Public Use
  Company Number: FR-MERCK-0902FRA00046

PATIENT
  Age: 53 Year
  Sex: Male

DRUGS (5)
  1. ZOCOR [Suspect]
     Indication: HYPERCHOLESTEROLAEMIA
     Route: 048
     Dates: start: 20040401
  2. BISOPROLOL FUMARATE [Suspect]
     Indication: HYPERTENSION
     Route: 048
     Dates: start: 20040101
  3. PERINDOPRIL ARGININE [Concomitant]
     Route: 048
  4. OMEPRAZOLE SODIUM [Concomitant]
     Route: 048
  5. CLOPIDOGREL BISULFATE [Concomitant]
     Indication: PROPHYLAXIS
     Route: 048

REACTIONS (2)
  - PULMONARY FIBROSIS [None]
  - SCLEROEDEMA [None]
